FAERS Safety Report 8566841 (Version 3)
Quarter: 2013Q3

REPORT INFORMATION
  Report Type: Spontaneous
  Country: CN (occurrence: CN)
  Receive Date: 20120517
  Receipt Date: 20130711
  Transmission Date: 20140515
  Serious: Yes (Congenital Anomaly, Other)
  Sender: FDA-Public Use
  Company Number: PHHY2012CN040465

PATIENT
  Sex: Female
  Weight: 2.7 kg

DRUGS (1)
  1. SEBIVO [Suspect]
     Dosage: MATERNAL DOSE: 600 MG DAILY
     Route: 064

REACTIONS (3)
  - Atrial septal defect [Unknown]
  - Umbilical cord abnormality [Unknown]
  - Foetal exposure during pregnancy [Unknown]
